FAERS Safety Report 9737514 (Version 1)
Quarter: 2013Q4

REPORT INFORMATION
  Report Type: Spontaneous
  Country: SE (occurrence: SE)
  Receive Date: 20131207
  Receipt Date: 20131207
  Transmission Date: 20140711
  Serious: Yes (Other)
  Sender: FDA-Public Use
  Company Number: SE-009507513-1312SWE000823

PATIENT
  Age: 22 Year
  Sex: Female

DRUGS (1)
  1. NEXPLANON [Suspect]
     Dosage: UNK
     Dates: start: 201105, end: 20131023

REACTIONS (3)
  - Pregnancy [Recovered/Resolved]
  - Drug ineffective [Unknown]
  - Abortion spontaneous [Unknown]
